FAERS Safety Report 22040509 (Version 1)
Quarter: 2023Q1

REPORT INFORMATION
  Report Type: Spontaneous
  Country: US (occurrence: US)
  Receive Date: 20230227
  Receipt Date: 20230227
  Transmission Date: 20230418
  Serious: No
  Sender: FDA-Public Use
  Company Number: US-CURIUM-2023000067

PATIENT

DRUGS (2)
  1. OXIDRONATE DISODIUM [Suspect]
     Active Substance: OXIDRONATE DISODIUM
     Indication: Bone scan
     Route: 051
     Dates: start: 20230125, end: 20230125
  2. TECHNETIUM TC-99M SODIUM PERTECHNETATE [Suspect]
     Active Substance: TECHNETIUM TC-99M SODIUM PERTECHNETATE
     Indication: Bone scan
     Route: 051
     Dates: start: 20230125, end: 20230125

REACTIONS (2)
  - Bone scan abnormal [Not Recovered/Not Resolved]
  - Drug ineffective [Not Recovered/Not Resolved]

NARRATIVE: CASE EVENT DATE: 20230125
